FAERS Safety Report 19825486 (Version 13)
Quarter: 2025Q2

REPORT INFORMATION
  Report Type: Spontaneous
  Country: US (occurrence: US)
  Receive Date: 20210914
  Receipt Date: 20250515
  Transmission Date: 20250717
  Serious: No
  Sender: BIOGEN
  Company Number: US-BIOGEN-2021BI01048189

PATIENT
  Age: 56 Year
  Sex: Male

DRUGS (2)
  1. TYSABRI [Suspect]
     Active Substance: NATALIZUMAB
     Indication: Multiple sclerosis
     Route: 050
     Dates: start: 20190621
  2. TYSABRI [Suspect]
     Active Substance: NATALIZUMAB
     Route: 050

REACTIONS (10)
  - Prescribed underdose [Not Recovered/Not Resolved]
  - Infusion site rash [Not Recovered/Not Resolved]
  - Infusion site haemorrhage [Unknown]
  - Dysphonia [Unknown]
  - Stress [Unknown]
  - Memory impairment [Unknown]
  - Irritable bowel syndrome [Unknown]
  - Fibromyalgia [Unknown]
  - Subcutaneous abscess [Unknown]
  - Alopecia [Unknown]

NARRATIVE: CASE EVENT DATE: 20210806
